FAERS Safety Report 7279380-8 (Version None)
Quarter: 2011Q1

REPORT INFORMATION
  Report Type: 
  Country: None (occurrence: None)
  Receive Date: 20110203
  Receipt Date: 20110203
  Transmission Date: 20110831
  Serious: Yes (Hospitalization)
  Sender: FDA-Public Use
  Company Number: None

PATIENT
  Age: 54 Year
  Sex: Female
  Weight: 63.5036 kg

DRUGS (12)
  1. AMBIEN [Concomitant]
  2. METHOTREXATE [Suspect]
     Indication: RHEUMATOID ARTHRITIS
     Dosage: 2.5MG 3 X A WEEK PO
     Route: 048
     Dates: start: 20100701, end: 20100805
  3. CELEXA [Concomitant]
  4. KLONOPIN [Concomitant]
  5. EVISTA [Concomitant]
  6. RESTASIS [Concomitant]
  7. HYDROCODONE W/TYLENOL [Concomitant]
  8. MINOCIN [Concomitant]
  9. TRAZODONE HCL [Concomitant]
  10. SAVELLA [Concomitant]
  11. SYNTHROID [Concomitant]
  12. OMEPRAZOLE [Concomitant]

REACTIONS (16)
  - MALAISE [None]
  - LEUKAEMIA [None]
  - HEADACHE [None]
  - HEPATITIS ACUTE [None]
  - IRON DEFICIENCY [None]
  - LYMPHADENOPATHY [None]
  - COAGULOPATHY [None]
  - MUSCLE SPASMS [None]
  - ANAEMIA [None]
  - CONSTIPATION [None]
  - NAUSEA [None]
  - FATIGUE [None]
  - CONTUSION [None]
  - VITAMIN D DEFICIENCY [None]
  - RED BLOOD CELL ABNORMALITY [None]
  - OROPHARYNGEAL PAIN [None]
